FAERS Safety Report 14081494 (Version 1)
Quarter: 2017Q4

REPORT INFORMATION
  Report Type: Spontaneous
  Country: US (occurrence: None)
  Receive Date: 20171012
  Receipt Date: 20171012
  Transmission Date: 20180321
  Serious: Yes (Hospitalization)
  Sender: FDA-Public Use
  Company Number: None

PATIENT
  Age: 53 Year
  Sex: Female

DRUGS (8)
  1. CHOLECALCIFEROL [Concomitant]
     Active Substance: CHOLECALCIFEROL
  2. OXYCODONE [Concomitant]
     Active Substance: OXYCODONE
  3. ESZOPICLONE. [Concomitant]
     Active Substance: ESZOPICLONE
  4. DEXAMETHASONE. [Concomitant]
     Active Substance: DEXAMETHASONE
  5. PREDNISONE. [Concomitant]
     Active Substance: PREDNISONE
  6. PEMBROLIZUMAB. [Suspect]
     Active Substance: PEMBROLIZUMAB
     Indication: NEOPLASM MALIGNANT
     Route: 042
     Dates: start: 20170619, end: 20170713
  7. COLBETASOL [Concomitant]
  8. ESOMEPRAZOLE [Concomitant]
     Active Substance: ESOMEPRAZOLE

REACTIONS (9)
  - Ventricular tachycardia [None]
  - Chest pain [None]
  - Ventricular hypokinesia [None]
  - Troponin increased [None]
  - Bundle branch block left [None]
  - Tachycardia [None]
  - Ejection fraction decreased [None]
  - Myocarditis [None]
  - Ventricular extrasystoles [None]

NARRATIVE: CASE EVENT DATE: 20170813
